FAERS Safety Report 23254338 (Version 2)
Quarter: 2023Q4

REPORT INFORMATION
  Report Type: Spontaneous
  Country: HU (occurrence: HU)
  Receive Date: 20231202
  Receipt Date: 20231215
  Transmission Date: 20240109
  Serious: Yes (Other)
  Sender: FDA-Public Use
  Company Number: HU-ABBVIE-5519582

PATIENT
  Sex: Male

DRUGS (5)
  1. VENETOCLAX [Suspect]
     Active Substance: VENETOCLAX
     Indication: Plasma cell myeloma
     Dosage: 400 MILLIGRAM
     Route: 048
     Dates: start: 20201014, end: 20210521
  2. BORTEZOMIB [Concomitant]
     Active Substance: BORTEZOMIB
     Indication: Plasma cell myeloma
     Dosage: 2.7 MILLIGRAM
     Dates: start: 20201014, end: 20210521
  3. DEXAMETHASONE [Concomitant]
     Active Substance: DEXAMETHASONE
     Indication: Plasma cell myeloma
  4. FLUOROURACIL [Concomitant]
     Active Substance: FLUOROURACIL
     Indication: Pancreatic neoplasm
  5. GEMCITABINE [Concomitant]
     Active Substance: GEMCITABINE
     Indication: Pancreatic neoplasm
     Dosage: 1000 MG/M2 ON DAY1-DAY8-DAY15 (WEEK1-WEEK2-WEEK3) IN 28 DAYS CYCLE

REACTIONS (3)
  - Pancreatic neoplasm [Unknown]
  - Tumour marker decreased [Unknown]
  - Off label use [Unknown]

NARRATIVE: CASE EVENT DATE: 20201014
